FAERS Safety Report 23947508 (Version 2)
Quarter: 2024Q3

REPORT INFORMATION
  Report Type: Report from Study
  Country: US (occurrence: US)
  Receive Date: 20240606
  Receipt Date: 20240701
  Transmission Date: 20241016
  Serious: Yes (Hospitalization)
  Sender: EISAI
  Company Number: US-Eisai-EC-2024-167329

PATIENT
  Age: 57 Year
  Sex: Male

DRUGS (3)
  1. LENVIMA [Suspect]
     Active Substance: LENVATINIB
     Indication: Renal cancer
     Route: 048
     Dates: start: 202404, end: 202405
  2. LENVIMA [Suspect]
     Active Substance: LENVATINIB
     Route: 048
     Dates: start: 20240620
  3. KEYTRUDA [Concomitant]
     Active Substance: PEMBROLIZUMAB
     Indication: Renal cancer
     Dosage: DOSE AND FREQUENCY UNKNOWN

REACTIONS (9)
  - Decreased appetite [Recovering/Resolving]
  - Dehydration [Recovered/Resolved]
  - Renal impairment [Recovering/Resolving]
  - Blood creatinine increased [Not Recovered/Not Resolved]
  - Nausea [Recovering/Resolving]
  - Lethargy [Recovered/Resolved]
  - Gout [Recovered/Resolved]
  - Weight decreased [Unknown]
  - Asthenia [Not Recovered/Not Resolved]

NARRATIVE: CASE EVENT DATE: 20240101
